FAERS Safety Report 17883812 (Version 1)
Quarter: 2020Q2

REPORT INFORMATION
  Report Type: Spontaneous
  Country: DE (occurrence: DE)
  Receive Date: 20200611
  Receipt Date: 20200611
  Transmission Date: 20200714
  Serious: Yes (Hospitalization)
  Sender: FDA-Public Use
  Company Number: DE-MYLANLABS-2020M1055480

PATIENT
  Age: 71 Year
  Sex: Male
  Weight: 92 kg

DRUGS (7)
  1. TROSPIUM [Concomitant]
     Active Substance: TROSPIUM
     Dosage: 30 MG, 0-0-1-0, TABLETTEN
     Route: 048
  2. FERROUS SULFATE. [Concomitant]
     Active Substance: FERROUS SULFATE
     Dosage: 80 MG, 2-0-2-0, RETARD-TABLETTEN
     Route: 048
  3. TAMSULOSIN [Suspect]
     Active Substance: TAMSULOSIN
     Indication: PRODUCT USED FOR UNKNOWN INDICATION
     Dosage: 0.4 MG, 0-0-1-0, KAPSELN
     Route: 048
  4. COAPROVEL [Interacting]
     Active Substance: HYDROCHLOROTHIAZIDE\IRBESARTAN
     Indication: PRODUCT USED FOR UNKNOWN INDICATION
     Dosage: 12.5|300 MG, 1-0-0-0, TABLETTEN
     Route: 048
  5. TEBONIN INTENS [Interacting]
     Active Substance: GINKGO
     Indication: PRODUCT USED FOR UNKNOWN INDICATION
     Dosage: 120 MG, 0-0-1-0, TABLETTEN
     Route: 048
  6. ALLOPURINOL. [Concomitant]
     Active Substance: ALLOPURINOL
     Dosage: 300 MG, 0.5-0-0-0, TABLETTEN
     Route: 048
  7. SIMVA ARISTO [Concomitant]
     Active Substance: SIMVASTATIN
     Dosage: 20 MG, 0-0-1-0, TABLETTEN
     Route: 048

REACTIONS (9)
  - Tachycardia [Unknown]
  - Product prescribing error [Unknown]
  - Drug interaction [Unknown]
  - Orthostatic intolerance [Unknown]
  - Syncope [Unknown]
  - Product monitoring error [Unknown]
  - Dizziness [Unknown]
  - Hypotension [Unknown]
  - Dehydration [Unknown]
